FAERS Safety Report 15363714 (Version 1)
Quarter: 2018Q3

REPORT INFORMATION
  Report Type: Spontaneous
  Country: US (occurrence: US)
  Receive Date: 20180907
  Receipt Date: 20180907
  Transmission Date: 20181010
  Serious: No
  Sender: FDA-Public Use
  Company Number: US-ASTRAZENECA-2018SF08499

PATIENT

DRUGS (2)
  1. HALDOL [Concomitant]
     Active Substance: HALOPERIDOL
  2. FASLODEX [Suspect]
     Active Substance: FULVESTRANT
     Route: 030

REACTIONS (2)
  - Dermal absorption impaired [Unknown]
  - Pain [Unknown]
